FAERS Safety Report 8804854 (Version 1)
Quarter: 2012Q4

REPORT INFORMATION
  Report Type: 
  Country: US (occurrence: US)
  Receive Date: 20120924
  Receipt Date: 20120924
  Transmission Date: 20130627
  Serious: Yes (Hospitalization)
  Sender: FDA-Public Use
  Company Number: US-PFIZER INC-2012232901

PATIENT
  Age: 37 Year
  Sex: Female
  Weight: 93.88 kg

DRUGS (4)
  1. LIPITOR [Suspect]
     Indication: BLOOD CHOLESTEROL INCREASED
     Dosage: 80 mg, 1x/day
     Route: 048
  2. ZOLOFT [Suspect]
     Indication: DEPRESSION
     Dosage: UNK
  3. METOPROLOL [Concomitant]
     Indication: HYPERTENSION
     Dosage: 100 mg, 2x/day
  4. OMEPRAZOLE [Concomitant]
     Indication: GASTROOESOPHAGEAL REFLUX DISEASE
     Dosage: 20 mg, 1x/day

REACTIONS (1)
  - Focal segmental glomerulosclerosis [Recovering/Resolving]
